FAERS Safety Report 20689937 (Version 1)
Quarter: 2022Q2

REPORT INFORMATION
  Report Type: Spontaneous
  Country: FR (occurrence: FR)
  Receive Date: 20220408
  Receipt Date: 20220408
  Transmission Date: 20220720
  Serious: Yes (Death, Life-Threatening)
  Sender: FDA-Public Use
  Company Number: None

PATIENT
  Age: 58 Year
  Sex: Female

DRUGS (1)
  1. VENLAFAXINE HYDROCHLORIDE [Suspect]
     Active Substance: VENLAFAXINE HYDROCHLORIDE
     Indication: Depression
     Dosage: 1 DF 1XDAY
     Route: 048

REACTIONS (4)
  - Antidepressant drug level above therapeutic [Fatal]
  - Cardiogenic shock [Fatal]
  - Multiple organ dysfunction syndrome [Fatal]
  - Cardiac failure [Fatal]

NARRATIVE: CASE EVENT DATE: 20210925
